FAERS Safety Report 9582759 (Version 1)
Quarter: 2013Q4

REPORT INFORMATION
  Report Type: Spontaneous
  Country: US (occurrence: US)
  Receive Date: 20131002
  Receipt Date: 20131002
  Transmission Date: 20140711
  Serious: No
  Sender: FDA-Public Use
  Company Number: US-AMGEN-USASP2013042841

PATIENT
  Age: 64 Year
  Sex: Female
  Weight: 88.44 kg

DRUGS (11)
  1. ENBREL [Suspect]
     Indication: RHEUMATOID ARTHRITIS
     Dosage: 50 MG, QWK
     Route: 058
     Dates: end: 201303
  2. LIPITOR [Concomitant]
     Dosage: 10 MG, UNK
  3. METFORMIN [Concomitant]
     Dosage: 500 MG, UNK
  4. LISINOPRIL [Concomitant]
     Dosage: 2.5 MG, UNK
  5. CITALOPRAM [Concomitant]
     Dosage: 10 MG, UNK
  6. SIMVASTATIN [Concomitant]
     Dosage: 5 MG, UNK
  7. LEVOTHYROXINE [Concomitant]
     Dosage: 25 MUG, UNK
  8. METOPROLOL [Concomitant]
     Dosage: 25 MG, UNK
  9. NEXIUM                             /01479302/ [Concomitant]
     Dosage: 20 MG, UNK
  10. VITAMIN B12                        /00056201/ [Concomitant]
     Dosage: 50 MUG, UNK
  11. ASPIRIN [Concomitant]
     Dosage: 81 MG, UNK

REACTIONS (1)
  - Alopecia [Unknown]
